FAERS Safety Report 8304264-3 (Version None)
Quarter: 2012Q2

REPORT INFORMATION
  Report Type: 
  Country: None (occurrence: None)
  Receive Date: 20120423
  Receipt Date: 20120417
  Transmission Date: 20120825
  Serious: Yes (Disabling, Other)
  Sender: FDA-Public Use
  Company Number: PHEH2012US000552

PATIENT
  Sex: Male
  Weight: 88.889 kg

DRUGS (1)
  1. GILENYA [Suspect]
     Indication: RELAPSING-REMITTING MULTIPLE SCLEROSIS
     Dosage: 0.5 MG, QD
     Route: 048
     Dates: start: 20111018

REACTIONS (17)
  - VIITH NERVE PARALYSIS [None]
  - FACIAL PARESIS [None]
  - LIP DISORDER [None]
  - EYELID SKIN DRYNESS [None]
  - GAIT DISTURBANCE [None]
  - HEADACHE [None]
  - PULSE ABNORMAL [None]
  - EYELID PTOSIS [None]
  - BELL'S PHENOMENON [None]
  - COLD SWEAT [None]
  - COORDINATION ABNORMAL [None]
  - HYPOAESTHESIA [None]
  - DYSKINESIA [None]
  - EYE DISORDER [None]
  - EYELID IRRITATION [None]
  - FACIAL PAIN [None]
  - BACK PAIN [None]
